FAERS Safety Report 25928820 (Version 1)
Quarter: 2025Q4

REPORT INFORMATION
  Report Type: Spontaneous
  Country: US (occurrence: US)
  Receive Date: 20251016
  Receipt Date: 20251016
  Transmission Date: 20260118
  Serious: No
  Sender: SANDOZ
  Company Number: US-SANDOZ-SDZ2025US075533

PATIENT
  Sex: Female
  Weight: 81.65 kg

DRUGS (1)
  1. ESTRADIOL [Suspect]
     Active Substance: ESTRADIOL
     Indication: Hormone replacement therapy
     Dosage: 0.1 MG, Q2W
     Route: 062
     Dates: start: 20250606, end: 20251009

REACTIONS (4)
  - Post procedural constipation [Not Recovered/Not Resolved]
  - Incorrect dose administered [Unknown]
  - Product adhesion issue [Unknown]
  - Circumstance or information capable of leading to device use error [Unknown]
